FAERS Safety Report 19647445 (Version 1)
Quarter: 2021Q3

REPORT INFORMATION
  Report Type: Spontaneous
  Country: KR (occurrence: KR)
  Receive Date: 20210802
  Receipt Date: 20210802
  Transmission Date: 20211014
  Serious: Yes (Other)
  Sender: FDA-Public Use
  Company Number: NVSC2021KR172663

PATIENT
  Age: 67 Year
  Sex: Male

DRUGS (3)
  1. REVOLADE [Suspect]
     Active Substance: ELTROMBOPAG OLAMINE
     Indication: PRODUCT USED FOR UNKNOWN INDICATION
     Dosage: UNK
     Route: 065
     Dates: start: 20191226
  2. REVOLADE [Suspect]
     Active Substance: ELTROMBOPAG OLAMINE
     Dosage: UNK
     Route: 065
     Dates: end: 20201130
  3. REVOLADE [Suspect]
     Active Substance: ELTROMBOPAG OLAMINE
     Dosage: 100 UNK
     Route: 065
     Dates: start: 20200525

REACTIONS (5)
  - Pancytopenia [Unknown]
  - Bone marrow failure [Unknown]
  - Paroxysmal nocturnal haemoglobinuria [Unknown]
  - Cutaneous T-cell lymphoma [Unknown]
  - Dysplasia [Unknown]
